FAERS Safety Report 14826461 (Version 1)
Quarter: 2018Q2

REPORT INFORMATION
  Report Type: Spontaneous
  Country: US (occurrence: US)
  Receive Date: 20180430
  Receipt Date: 20180430
  Transmission Date: 20180711
  Serious: Yes (Other)
  Sender: FDA-Public Use
  Company Number: US-AUROBINDO-AUR-APL-2018-022333

PATIENT
  Age: 74 Year
  Sex: Female

DRUGS (1)
  1. PREDNISONE. [Suspect]
     Active Substance: PREDNISONE
     Indication: BRONCHITIS
     Dosage: 40 MILLIGRAM, DAILY
     Route: 065
     Dates: start: 201701

REACTIONS (2)
  - Back pain [Unknown]
  - Spinal fracture [Unknown]
